FAERS Safety Report 8306459-1 (Version None)
Quarter: 2012Q2

REPORT INFORMATION
  Report Type: 
  Country: None (occurrence: None)
  Receive Date: 20120424
  Receipt Date: 20120419
  Transmission Date: 20120825
  Serious: Yes (Hospitalization)
  Sender: FDA-Public Use
  Company Number: US-AMGEN-USASP2012020436

PATIENT
  Age: 80 Year
  Sex: Male
  Weight: 94.875 kg

DRUGS (1)
  1. XGEVA [Suspect]
     Indication: PRODUCT USED FOR UNKNOWN INDICATION
     Dosage: 120 MG, QMO
     Route: 058
     Dates: start: 20111207, end: 20120104

REACTIONS (7)
  - NEUROPATHY PERIPHERAL [None]
  - DENERVATION ATROPHY [None]
  - MUSCLE ATROPHY [None]
  - ASTHENIA [None]
  - MUSCULOSKELETAL PAIN [None]
  - ARTHRALGIA [None]
  - BACK PAIN [None]
